FAERS Safety Report 5421513-X (Version None)
Quarter: 2007Q3

REPORT INFORMATION
  Report Type: 
  Country: None (occurrence: None)
  Receive Date: 20070821
  Receipt Date: 20070810
  Transmission Date: 20080115
  Serious: Yes (Hospitalization)
  Sender: FDA-Public Use
  Company Number: IT-PFIZER INC-2007066740

PATIENT
  Age: 63 Year
  Sex: Male

DRUGS (2)
  1. METHYLPREDNISOLONE 16MG TAB [Suspect]
     Indication: PEMPHIGUS
  2. AZATHIOPRINE [Concomitant]
     Indication: PEMPHIGUS

REACTIONS (1)
  - NOCARDIOSIS [None]
